FAERS Safety Report 10036938 (Version 1)
Quarter: 2014Q1

REPORT INFORMATION
  Report Type: Spontaneous
  Country: US (occurrence: US)
  Receive Date: 20140326
  Receipt Date: 20140326
  Transmission Date: 20141002
  Serious: No
  Sender: FDA-Public Use
  Company Number: US-BIOGENIDEC-2014BI025850

PATIENT
  Age: 66 Year
  Sex: Female

DRUGS (1)
  1. TECFIDERA [Suspect]
     Indication: MULTIPLE SCLEROSIS
     Route: 048
     Dates: end: 20140313

REACTIONS (4)
  - Faeces discoloured [Unknown]
  - Abdominal discomfort [Unknown]
  - Diarrhoea [Unknown]
  - Vomiting [Unknown]
